FAERS Safety Report 7713489-7 (Version None)
Quarter: 2011Q3

REPORT INFORMATION
  Report Type: 
  Country: None (occurrence: None)
  Receive Date: 20110826
  Receipt Date: 20110823
  Transmission Date: 20111222
  Serious: Yes (Life-Threatening, Hospitalization, Other)
  Sender: FDA-Public Use
  Company Number: BR-ABBOTT-10P-020-0624822-00

PATIENT
  Sex: Female
  Weight: 97 kg

DRUGS (6)
  1. COMBIVIR [Concomitant]
     Indication: SEXUALLY TRANSMITTED DISEASE
     Dosage: 300/600 MG
     Route: 048
     Dates: start: 20071121, end: 20100115
  2. COMBIVIR [Concomitant]
     Indication: PROPHYLAXIS
  3. KALETRA [Suspect]
     Indication: SEXUALLY TRANSMITTED DISEASE
     Dosage: 800/200 MG
     Route: 048
     Dates: start: 20080912, end: 20100115
  4. KALETRA [Suspect]
     Indication: PROPHYLAXIS
  5. HIDROXIZIN [Concomitant]
     Indication: PRODUCT USED FOR UNKNOWN INDICATION
     Dosage: 3 MONTH EXPOSURE
  6. AMYTRIPTILINE [Concomitant]
     Indication: PRODUCT USED FOR UNKNOWN INDICATION
     Dosage: 4 MONTH EXPOSURE

REACTIONS (2)
  - ACUTE ABDOMEN [None]
  - ECTOPIC PREGNANCY [None]
